FAERS Safety Report 8044369-8 (Version None)
Quarter: 2012Q1

REPORT INFORMATION
  Report Type: 
  Country: None (occurrence: None)
  Receive Date: 20120113
  Receipt Date: 20120112
  Transmission Date: 20120608
  Serious: No
  Sender: FDA-Public Use
  Company Number: US-B.I. PHARMACEUTICALS,INC./RIDGEFIELD-2012-BP-00665BP

PATIENT
  Sex: Female

DRUGS (14)
  1. PRADAXA [Suspect]
     Indication: ATRIAL FIBRILLATION
     Dosage: 300 MG
     Route: 048
     Dates: start: 20111228, end: 20120106
  2. ESTRADERM [Concomitant]
     Indication: HORMONE THERAPY
     Dosage: 0.5 MG
     Route: 048
     Dates: start: 19800101
  3. TOPROL-XL [Concomitant]
     Indication: HYPERTENSION
     Dosage: 25 MG
     Route: 048
     Dates: start: 20010101
  4. PRAVACHOL [Concomitant]
     Indication: BLOOD CHOLESTEROL INCREASED
     Dosage: 20 MG
     Route: 048
     Dates: start: 20010101
  5. VITAMIN D [Concomitant]
     Indication: PROPHYLAXIS
     Dosage: 800 U
     Route: 048
     Dates: start: 20090101
  6. FISH OIL [Concomitant]
     Indication: PROPHYLAXIS
     Dosage: 1200 MG
     Route: 048
     Dates: start: 20010101
  7. PROBIOTIC [Concomitant]
     Indication: PROPHYLAXIS
     Route: 048
     Dates: start: 20060101
  8. FENOFIBRATE [Concomitant]
     Indication: BLOOD CHOLESTEROL INCREASED
     Dosage: 54 MG
     Route: 048
     Dates: start: 20090101
  9. NIACIN [Concomitant]
     Indication: BLOOD CHOLESTEROL INCREASED
     Dosage: 250 MG
     Route: 048
     Dates: start: 20090101
  10. WARFARIN SODIUM [Concomitant]
     Indication: ATRIAL FIBRILLATION
     Dosage: 4 MG
     Route: 048
     Dates: start: 20120111
  11. ASPIRIN [Concomitant]
     Indication: PROPHYLAXIS
     Dosage: 81 MG
     Route: 048
     Dates: start: 20010101
  12. PRADAXA [Suspect]
     Dosage: 150 MG
     Route: 048
     Dates: start: 20120106, end: 20120110
  13. PROVERA [Concomitant]
     Indication: HORMONE THERAPY
     Dosage: 2.5 MG
     Route: 048
     Dates: start: 19800101
  14. CALCIUM [Concomitant]
     Indication: PROPHYLAXIS
     Dosage: 600 MG
     Route: 048
     Dates: start: 20090101

REACTIONS (3)
  - DYSPEPSIA [None]
  - ABDOMINAL PAIN UPPER [None]
  - DIZZINESS [None]
